FAERS Safety Report 11875905 (Version 2)
Quarter: 2016Q1

REPORT INFORMATION
  Report Type: Report from Study
  Country: DE (occurrence: DE)
  Receive Date: 20151229
  Receipt Date: 20160120
  Transmission Date: 20160526
  Serious: Yes (Death)
  Sender: FDA-Public Use
  Company Number: DE-ACTELION-A-US2015-129216

PATIENT
  Sex: Female

DRUGS (14)
  1. RIOCIGUAT [Concomitant]
     Active Substance: RIOCIGUAT
  2. LACTULOSE. [Concomitant]
     Active Substance: LACTULOSE
  3. VENTAVIS [Suspect]
     Active Substance: ILOPROST
     Indication: PULMONARY ARTERIAL HYPERTENSION
     Dosage: 2.5 MCG, QID
     Route: 055
     Dates: start: 20140827
  4. ALDACTONE [Concomitant]
     Active Substance: SPIRONOLACTONE
  5. MAGNESIUM [Concomitant]
     Active Substance: MAGNESIUM
  6. PREPACOL [Concomitant]
  7. TOREM [Concomitant]
     Active Substance: TORSEMIDE
  8. KALINOR [Concomitant]
     Active Substance: POTASSIUM CITRATE
  9. VIGANTOLETTEN [Concomitant]
     Active Substance: CHOLECALCIFEROL
  10. UNACID [Concomitant]
     Active Substance: AMPICILLIN SODIUM\SULBACTAM SODIUM
  11. FERRO-SANOL DUODENAL [Concomitant]
     Active Substance: FERROUS GLYCINE SULFATE
  12. GLIVEC [Concomitant]
     Active Substance: IMATINIB MESYLATE
     Dosage: UNK
     Dates: start: 200401
  13. NOVAMINSULFON [Concomitant]
     Active Substance: METAMIZOLE
  14. MOVICOL [Concomitant]
     Active Substance: POLYETHYLENE GLYCOL 3350\POTASSIUM CHLORIDE\SODIUM BICARBONATE\SODIUM CHLORIDE

REACTIONS (1)
  - Gastrointestinal stromal tumour [Fatal]
